FAERS Safety Report 7986587-0 (Version None)
Quarter: 2011Q4

REPORT INFORMATION
  Report Type: 
  Country: None (occurrence: None)
  Receive Date: 20111216
  Receipt Date: 20110808
  Transmission Date: 20120403
  Serious: No
  Sender: FDA-Public Use
  Company Number: US-BRISTOL-MYERS SQUIBB COMPANY-15936016

PATIENT
  Age: 41 Year
  Sex: Male

DRUGS (2)
  1. CYMBALTA [Suspect]
  2. ABILIFY [Suspect]
     Indication: MAJOR DEPRESSION
     Dosage: INITIALLY GIVEN 2 MG THEN INCREASED TO 5MG
     Route: 048
     Dates: start: 20110518, end: 20110712

REACTIONS (1)
  - ARTHRALGIA [None]
